FAERS Safety Report 18456145 (Version 2)
Quarter: 2022Q4

REPORT INFORMATION
  Report Type: Spontaneous
  Country: LT (occurrence: LT)
  Receive Date: 20201103
  Receipt Date: 20221015
  Transmission Date: 20230112
  Serious: Yes (Hospitalization, Other)
  Sender: FDA-Public Use
  Company Number: LT-ACCORD-207074

PATIENT
  Age: 55 Year
  Sex: Female

DRUGS (7)
  1. METHOTREXATE [Suspect]
     Active Substance: METHOTREXATE
     Indication: Rheumatoid arthritis
     Dosage: DOSE INCREASED TO 15 MG / WEEK
  2. FOLIC ACID [Concomitant]
     Active Substance: FOLIC ACID
     Indication: Rheumatoid arthritis
  3. METHYLPREDNISOLONE [Concomitant]
     Active Substance: METHYLPREDNISOLONE
     Indication: Rheumatoid arthritis
  4. LORNOXICAM [Concomitant]
     Active Substance: LORNOXICAM
     Indication: Rheumatoid arthritis
     Dosage: 8 MG 2 TIMES / DAY
  5. PLAQUENIL [Concomitant]
     Active Substance: HYDROXYCHLOROQUINE SULFATE
     Indication: Rheumatoid arthritis
     Dosage: 200 MG 2 TIMES / DAY
  6. INFLIXIMAB [Concomitant]
     Active Substance: INFLIXIMAB
     Indication: Rheumatoid arthritis
     Dosage: 3 MG / KG
     Dates: start: 20190611, end: 20190724
  7. TRANDOLAPRIL\VERAPAMIL HYDROCHLORIDE [Concomitant]
     Active Substance: TRANDOLAPRIL\VERAPAMIL HYDROCHLORIDE
     Indication: Hypertension
     Dosage: 240 MG / 4 MG 1 TIME /DAY

REACTIONS (5)
  - Tick-borne viral encephalitis [Recovered/Resolved]
  - Somnolence [Recovering/Resolving]
  - Drug intolerance [Unknown]
  - Brain oedema [Recovering/Resolving]
  - Drug ineffective [Unknown]
